FAERS Safety Report 9298099 (Version 2)
Quarter: 2013Q2

REPORT INFORMATION
  Report Type: Spontaneous
  Country: JP (occurrence: JP)
  Receive Date: 20130520
  Receipt Date: 20130603
  Transmission Date: 20140414
  Serious: Yes (Other)
  Sender: FDA-Public Use
  Company Number: JP-ASTELLAS-2013EU004331

PATIENT
  Age: 74 Year
  Sex: Male
  Weight: 43 kg

DRUGS (7)
  1. TAMSULOSIN [Suspect]
     Indication: PROSTATOMEGALY
     Dosage: UNK
     Route: 065
     Dates: start: 201010
  2. SOLIFENACIN [Suspect]
     Indication: HYPERTONIC BLADDER
     Dosage: UNK
     Route: 065
     Dates: start: 201010
  3. SIFROL [Suspect]
     Indication: PARKINSON^S DISEASE
     Dosage: UNK
     Route: 065
     Dates: start: 200711
  4. MANTIDAN [Suspect]
     Indication: PARKINSON^S DISEASE
     Dosage: UNK
     Route: 065
     Dates: start: 200711
  5. LEVODOPA [Suspect]
     Indication: PARKINSON^S DISEASE
     Dosage: UNK
     Route: 065
     Dates: start: 200711
  6. DROXIDOPA [Suspect]
     Indication: PARKINSON^S DISEASE
     Dosage: UNK
     Route: 065
     Dates: start: 200711
  7. ZONISAMIDE [Suspect]
     Indication: PARKINSON^S DISEASE
     Dosage: UNK
     Route: 065
     Dates: start: 201012

REACTIONS (3)
  - Interstitial lung disease [Recovered/Resolved]
  - Hepatitis B [Recovered/Resolved]
  - Hepatitis [Recovered/Resolved]
